FAERS Safety Report 6793242-1 (Version None)
Quarter: 2010Q2

REPORT INFORMATION
  Report Type: 
  Country: None (occurrence: None)
  Receive Date: 20100624
  Receipt Date: 20091013
  Transmission Date: 20101027
  Serious: Yes (Death)
  Sender: FDA-Public Use
  Company Number: US-MYLANLABS-2009S1016787

PATIENT
  Age: 55 Year
  Sex: Male
  Weight: 93.9 kg

DRUGS (14)
  1. CLOZAPINE [Suspect]
     Indication: SCHIZOAFFECTIVE DISORDER BIPOLAR TYPE
     Route: 048
     Dates: end: 20090101
  2. CLOZAPINE [Suspect]
     Route: 048
     Dates: end: 20090101
  3. LEVOTHYROXINE [Concomitant]
     Indication: HYPOTHYROIDISM
     Route: 048
  4. RISPERDAL [Concomitant]
     Route: 048
  5. DILANTIN [Concomitant]
     Route: 048
  6. ZOCOR [Concomitant]
     Indication: BLOOD CHOLESTEROL INCREASED
     Route: 048
  7. TRICOR [Concomitant]
     Indication: BLOOD CHOLESTEROL INCREASED
     Route: 048
  8. PREVACID [Concomitant]
     Indication: GASTROOESOPHAGEAL REFLUX DISEASE
     Route: 048
  9. GLIPIZIDE [Concomitant]
     Indication: DIABETES MELLITUS
     Route: 048
  10. METFORMIN HCL [Concomitant]
     Indication: DIABETES MELLITUS
     Route: 048
  11. SENOKOT [Concomitant]
     Route: 048
  12. RISPERDAL CONSTA [Concomitant]
     Route: 030
  13. MULTI-VITAMIN [Concomitant]
     Route: 048
  14. COMBIVENT [Concomitant]
     Dosage: 2 PUFFS
     Route: 055

REACTIONS (5)
  - CHRONIC OBSTRUCTIVE PULMONARY DISEASE [None]
  - CONVULSION [None]
  - HYPERCHOLESTEROLAEMIA [None]
  - HYPOTHYROIDISM [None]
  - TYPE 2 DIABETES MELLITUS [None]
